FAERS Safety Report 5135224-1 (Version None)
Quarter: 2006Q4

REPORT INFORMATION
  Report Type: 
  Country: None (occurrence: None)
  Receive Date: 20061026
  Receipt Date: 20060912
  Transmission Date: 20070319
  Serious: Yes (Hospitalization)
  Sender: FDA-Public Use
  Company Number: GB-JNJFOC-20060903720

PATIENT
  Age: 9 Decade
  Sex: Female

DRUGS (1)
  1. IMODIUM [Suspect]
     Indication: DIARRHOEA
     Route: 065

REACTIONS (2)
  - DIARRHOEA [None]
  - DRUG INEFFECTIVE [None]
